FAERS Safety Report 9226791 (Version 1)
Quarter: 2013Q2

REPORT INFORMATION
  Report Type: Spontaneous
  Country: US (occurrence: US)
  Receive Date: 20130412
  Receipt Date: 20130412
  Transmission Date: 20140414
  Serious: Yes (Life-Threatening)
  Sender: FDA-Public Use
  Company Number: US-BAYER-2013-045589

PATIENT
  Age: 46 Year
  Sex: Male

DRUGS (1)
  1. AVELOX [Suspect]
     Dosage: UNK

REACTIONS (2)
  - Cerebrovascular accident [None]
  - Hypercoagulation [None]
